FAERS Safety Report 21950939 (Version 3)
Quarter: 2023Q2

REPORT INFORMATION
  Report Type: Report from Study
  Country: AR (occurrence: AR)
  Receive Date: 20230203
  Receipt Date: 20230509
  Transmission Date: 20230721
  Serious: Yes (Hospitalization)
  Sender: FDA-Public Use
  Company Number: AR-002147023-NVSC2022AR257410

PATIENT
  Age: 25 Year
  Sex: Female
  Weight: 41 kg

DRUGS (24)
  1. MYFORTIC [Suspect]
     Active Substance: MYCOPHENOLATE SODIUM
     Indication: Product used for unknown indication
     Dosage: UNK
     Route: 065
  2. IPTACOPAN [Suspect]
     Active Substance: IPTACOPAN
     Indication: Glomerulonephropathy
     Dosage: CODE NOT BROKEN
     Route: 048
     Dates: start: 20221013, end: 20221121
  3. INVESTIGATIONAL PRODUCT [Suspect]
     Active Substance: INVESTIGATIONAL PRODUCT
     Indication: Glomerulonephropathy
     Dosage: CODE NOT BROKEN
     Route: 048
     Dates: start: 20221013, end: 20221121
  4. PLACEBO [Suspect]
     Active Substance: UNSPECIFIED INGREDIENT
     Indication: Glomerulonephropathy
     Dosage: CODE NOT BROKEN
     Route: 048
     Dates: start: 20221013, end: 20221121
  5. IPTACOPAN [Suspect]
     Active Substance: IPTACOPAN
     Dosage: CODE NOT BROKEN
     Route: 048
     Dates: start: 20221125
  6. INVESTIGATIONAL PRODUCT [Suspect]
     Active Substance: INVESTIGATIONAL PRODUCT
     Dosage: CODE NOT BROKEN
     Route: 048
     Dates: start: 20221125
  7. PLACEBO [Suspect]
     Active Substance: UNSPECIFIED INGREDIENT
     Dosage: CODE NOT BROKEN
     Route: 048
     Dates: start: 20221125
  8. SULFAMETHOXAZOLE\TRIMETHOPRIM [Concomitant]
     Active Substance: SULFAMETHOXAZOLE\TRIMETHOPRIM
     Indication: Urinary tract infection
     Dosage: UNK
     Route: 065
     Dates: start: 20221027, end: 20221103
  9. FOLIC ACID [Concomitant]
     Active Substance: FOLIC ACID
     Indication: General physical condition
     Dosage: UNK
     Route: 065
     Dates: start: 20210705
  10. CRANBERRY [Concomitant]
     Active Substance: CRANBERRY
     Indication: Infection prophylaxis
     Dosage: UNK
     Route: 065
     Dates: start: 20221111
  11. VITAMIN C [Concomitant]
     Active Substance: ASCORBIC ACID
     Indication: Infection prophylaxis
     Dosage: UNK
     Route: 065
     Dates: start: 20221111
  12. MEPREDNISONE [Concomitant]
     Active Substance: MEPREDNISONE
     Indication: Supplementation therapy
     Dosage: UNK
     Route: 065
     Dates: start: 20210705
  13. MYCOPHENOLIC ACID [Concomitant]
     Active Substance: MYCOPHENOLIC ACID
     Indication: Supplementation therapy
     Dosage: UNK
     Route: 065
     Dates: start: 20210705, end: 20221114
  14. LOSARTAN [Concomitant]
     Active Substance: LOSARTAN
     Indication: Supplementation therapy
     Dosage: UNK
     Route: 065
     Dates: start: 20210705, end: 20221114
  15. ENALAPRIL [Concomitant]
     Active Substance: ENALAPRIL
     Indication: Supplementation therapy
     Dosage: UNK
     Route: 065
     Dates: start: 20210705, end: 20221114
  16. DAPAGLIFLOZIN [Concomitant]
     Active Substance: DAPAGLIFLOZIN
     Indication: Supplementation therapy
     Dosage: UNK
     Route: 065
     Dates: start: 20220514, end: 20221114
  17. LEVOTHYROXINE [Concomitant]
     Active Substance: LEVOTHYROXINE
     Indication: Hypothyroidism
     Dosage: UNK
     Route: 065
     Dates: start: 20210705
  18. VITAMIN D2 [Concomitant]
     Active Substance: ERGOCALCIFEROL
     Indication: General physical condition
     Dosage: UNK
     Route: 065
     Dates: start: 20210705
  19. CALCIUM CITRATE [Concomitant]
     Active Substance: CALCIUM CITRATE
     Indication: General physical condition
     Dosage: UNK
     Route: 065
     Dates: start: 20210705
  20. VITAMIN B COMPLEX [Concomitant]
     Active Substance: CYANOCOBALAMIN\DEXPANTHENOL\NIACINAMIDE\PYRIDOXINE HYDROCHLORIDE\RIBOFLAVIN 5^-PHOSPHATE SODIUM\THIA
     Indication: General physical condition
     Dosage: UNK
     Route: 065
     Dates: start: 20210705
  21. ATORVASTATIN [Concomitant]
     Active Substance: ATORVASTATIN
     Indication: General physical condition
     Dosage: UNK
     Route: 065
     Dates: start: 20210705
  22. PROGESTERONE [Concomitant]
     Active Substance: PROGESTERONE
     Indication: Menstrual disorder
     Dosage: UNK
     Route: 065
     Dates: start: 20210701
  23. ESTRADIOL [Concomitant]
     Active Substance: ESTRADIOL
     Indication: Menstrual disorder
     Dosage: UNK
     Route: 065
     Dates: start: 20210705
  24. ERYTHROPOIETIN [Concomitant]
     Active Substance: ERYTHROPOIETIN
     Indication: Iron deficiency anaemia
     Dosage: UNK
     Route: 065
     Dates: start: 20220714

REACTIONS (1)
  - Acute kidney injury [Recovered/Resolved]

NARRATIVE: CASE EVENT DATE: 20221114
